FAERS Safety Report 12620817 (Version 1)
Quarter: 2016Q3

REPORT INFORMATION
  Report Type: Spontaneous
  Country: NL (occurrence: CA)
  Receive Date: 20160804
  Receipt Date: 20160804
  Transmission Date: 20161109
  Serious: Yes (Other)
  Sender: FDA-Public Use
  Company Number: NL-SCIEGEN PHARMACEUTICALS INC-2016SCILIT00260

PATIENT
  Age: 54 Year
  Sex: Male

DRUGS (6)
  1. GABAPENTIN CAPSULES [Suspect]
     Active Substance: GABAPENTIN
     Indication: SEIZURE
     Dosage: 3000 MG, QD
     Route: 065
  2. CLONAZEPAM. [Suspect]
     Active Substance: CLONAZEPAM
     Indication: SEIZURE
     Dosage: 1.5 MG, QD
     Route: 065
  3. CALCIUM CARBONATE. [Suspect]
     Active Substance: CALCIUM CARBONATE
     Indication: HYPOCALCAEMIA
     Dosage: UNK
     Route: 065
  4. VITAMIN D [Suspect]
     Active Substance: CHOLECALCIFEROL
     Indication: HYPOCALCAEMIA
     Dosage: UNK
     Route: 065
  5. VITAMIN D [Suspect]
     Active Substance: CHOLECALCIFEROL
     Indication: HYPOPARATHYROIDISM
  6. CALCIUM CARBONATE. [Suspect]
     Active Substance: CALCIUM CARBONATE
     Indication: HYPOPARATHYROIDISM

REACTIONS (8)
  - Cognitive disorder [Unknown]
  - Muscle twitching [Unknown]
  - Tardive dyskinesia [Unknown]
  - Cerebral atrophy [Unknown]
  - Gait disturbance [Unknown]
  - Parkinsonism [Unknown]
  - Memory impairment [Unknown]
  - Resting tremor [Unknown]
